FAERS Safety Report 12337095 (Version 3)
Quarter: 2016Q2

REPORT INFORMATION
  Report Type: Report from Study
  Country: CA (occurrence: CA)
  Receive Date: 20160505
  Receipt Date: 20160526
  Transmission Date: 20160815
  Serious: Yes (Other)
  Sender: FDA-Public Use
  Company Number: CA-ABBVIE-16K-028-1617982-00

PATIENT
  Sex: Male
  Weight: 83.99 kg

DRUGS (1)
  1. HUMIRA [Suspect]
     Active Substance: ADALIMUMAB
     Indication: CROHN^S DISEASE
     Route: 058
     Dates: start: 20110502, end: 201604

REACTIONS (8)
  - Gastrointestinal obstruction [Unknown]
  - Rash [Not Recovered/Not Resolved]
  - Drug ineffective [Unknown]
  - Crohn^s disease [Unknown]
  - Skin lesion [Recovered/Resolved]
  - Rash papular [Not Recovered/Not Resolved]
  - Abdominal mass [Recovering/Resolving]
  - Iron deficiency [Unknown]

NARRATIVE: CASE EVENT DATE: 2012
